FAERS Safety Report 4396321-1 (Version None)
Quarter: 2004Q3

REPORT INFORMATION
  Report Type: 
  Country: None (occurrence: None)
  Receive Date: 20040713
  Receipt Date: 20040614
  Transmission Date: 20050211
  Serious: Yes (Other)
  Sender: FDA-Public Use
  Company Number: 2004010880

PATIENT
  Age: 19 Year
  Sex: Female
  Weight: 66 kg

DRUGS (1)
  1. LAMICTAL [Suspect]
     Dosage: 200MG SINGLE DOSE
     Route: 048
     Dates: start: 20040613, end: 20040613

REACTIONS (6)
  - BLOOD POTASSIUM INCREASED [None]
  - BLOOD SODIUM INCREASED [None]
  - INTENTIONAL OVERDOSE [None]
  - PSYCHOMOTOR RETARDATION [None]
  - SOMNOLENCE [None]
  - SUICIDE ATTEMPT [None]
